FAERS Safety Report 7511617-X (Version None)
Quarter: 2011Q2

REPORT INFORMATION
  Report Type: 
  Country: None (occurrence: None)
  Receive Date: 20110531
  Receipt Date: 20110526
  Transmission Date: 20111010
  Serious: Yes (Other)
  Sender: FDA-Public Use
  Company Number: US-PFIZER INC-2011104677

PATIENT
  Sex: Female

DRUGS (2)
  1. ZOLOFT [Suspect]
     Indication: DEPRESSION
     Dosage: UNK
     Route: 048
  2. PREMPRO [Suspect]
     Indication: MENOPAUSE
     Dosage: 0.45 MG, DAILY
     Route: 048

REACTIONS (6)
  - MALAISE [None]
  - HYSTERECTOMY [None]
  - CYSTOPEXY [None]
  - DEPRESSION [None]
  - MENTAL STATUS CHANGES [None]
  - FEELING ABNORMAL [None]
